FAERS Safety Report 11324949 (Version 1)
Quarter: 2015Q3

REPORT INFORMATION
  Report Type: Report from Study
  Country: US (occurrence: US)
  Receive Date: 20150730
  Receipt Date: 20150730
  Transmission Date: 20151125
  Serious: Yes (Other)
  Sender: FDA-Public Use
  Company Number: US-BAYER-2015-386427

PATIENT
  Age: 14 Year
  Sex: Female

DRUGS (2)
  1. DIPHENHYDRAMINE. [Suspect]
     Active Substance: DIPHENHYDRAMINE
  2. ACETAMINOPHEN. [Interacting]
     Active Substance: ACETAMINOPHEN
     Dosage: 25 G

REACTIONS (3)
  - Intentional overdose [None]
  - Hepatotoxicity [None]
  - Drug interaction [None]
